FAERS Safety Report 22604118 (Version 1)
Quarter: 2023Q2

REPORT INFORMATION
  Report Type: Spontaneous
  Country: US (occurrence: US)
  Receive Date: 20230615
  Receipt Date: 20230615
  Transmission Date: 20230722
  Serious: Yes (Hospitalization)
  Sender: FDA-Public Use
  Company Number: US-LEO Pharma-352642

PATIENT
  Age: 67 Year

DRUGS (1)
  1. FINACEA [Suspect]
     Active Substance: AZELAIC ACID
     Indication: Rosacea
     Dosage: UNKNOWN

REACTIONS (3)
  - Cardiac operation [Unknown]
  - Expired product administered [Unknown]
  - Cardiac disorder [Unknown]
